FAERS Safety Report 4932100-1 (Version None)
Quarter: 2006Q1

REPORT INFORMATION
  Report Type: 
  Country: None (occurrence: None)
  Receive Date: 20060228
  Receipt Date: 20060222
  Transmission Date: 20060701
  Serious: Yes (Other)
  Sender: FDA-Public Use
  Company Number: 200512510BWH

PATIENT
  Age: 52 Year
  Sex: Male
  Weight: 88 kg

DRUGS (3)
  1. TRASYLOL [Suspect]
     Indication: CORONARY ARTERY SURGERY
     Dosage: 1 ML, ONCE; INTRAVENOUS, 200 ML, ONCE; INTRAVENOUS, NI, Q1HR; INTRAVENOUS, 200 ML, ONCE; INTRAVENOUS
     Route: 042
     Dates: start: 20051102
  2. TRASYLOL [Suspect]
     Indication: MITRAL VALVE REPAIR
     Dosage: 1 ML, ONCE; INTRAVENOUS, 200 ML, ONCE; INTRAVENOUS, NI, Q1HR; INTRAVENOUS, 200 ML, ONCE; INTRAVENOUS
     Route: 042
     Dates: start: 20051102
  3. AMICAR [Concomitant]

REACTIONS (4)
  - BRONCHOSPASM [None]
  - LUNG DISORDER [None]
  - PROCEDURAL COMPLICATION [None]
  - PULMONARY OEDEMA [None]
